FAERS Safety Report 7708789-0 (Version None)
Quarter: 2011Q3

REPORT INFORMATION
  Report Type: 
  Country: None (occurrence: None)
  Receive Date: 20110825
  Receipt Date: 20110815
  Transmission Date: 20111222
  Serious: Yes (Hospitalization, Other)
  Sender: FDA-Public Use
  Company Number: GB-BRISTOL-MYERS SQUIBB COMPANY-15994411

PATIENT
  Age: 35 Year
  Sex: Male

DRUGS (10)
  1. RAMIPRIL [Suspect]
     Route: 048
  2. BUMETANIDE [Concomitant]
     Route: 048
  3. TRIMETHOPRIM [Concomitant]
     Route: 048
  4. METFORMIN HCL [Suspect]
     Dosage: TOTAL-2G.
     Route: 048
  5. BISOPROLOL FUMARATE [Concomitant]
     Route: 048
  6. SIMVASTATIN [Concomitant]
     Route: 048
  7. DIGOXIN [Concomitant]
     Route: 048
  8. MEBEVERINE [Concomitant]
     Route: 048
  9. GLIMEPIRIDE [Suspect]
     Route: 048
  10. OMEPRAZOLE [Concomitant]
     Route: 048

REACTIONS (2)
  - RENAL FAILURE ACUTE [None]
  - HYPOGLYCAEMIA [None]
